FAERS Safety Report 26212232 (Version 1)
Quarter: 2025Q4

REPORT INFORMATION
  Report Type: Spontaneous
  Country: JP (occurrence: JP)
  Receive Date: 20251230
  Receipt Date: 20251230
  Transmission Date: 20260118
  Serious: Yes (Hospitalization, Other)
  Sender: UCB
  Company Number: JP-UCBJ-CD202515755UCBPHAPROD

PATIENT
  Age: 21 Year

DRUGS (2)
  1. BRIVIACT [Suspect]
     Active Substance: BRIVARACETAM
     Indication: Frontal lobe epilepsy
     Dosage: 50 MILLIGRAM, 2X/DAY (BID)
  2. DEPAKENE [Concomitant]
     Active Substance: VALPROIC ACID
     Indication: Frontal lobe epilepsy
     Dosage: 200 MILLIGRAM, 2X/DAY (BID)
     Route: 061

REACTIONS (2)
  - Renal impairment [Recovering/Resolving]
  - Rhabdomyolysis [Unknown]
